FAERS Safety Report 11471252 (Version 3)
Quarter: 2015Q3

REPORT INFORMATION
  Report Type: Spontaneous
  Country: JP (occurrence: JP)
  Receive Date: 20150908
  Receipt Date: 20150908
  Transmission Date: 20151125
  Serious: Yes (Hospitalization)
  Sender: FDA-Public Use
  Company Number: JP-ACTAVIS-2012-24248

PATIENT
  Age: 59 Year
  Sex: Male

DRUGS (5)
  1. URSODEOXYCHOLIC ACID (UNKNOWN) [Suspect]
     Active Substance: URSODIOL
     Indication: CHOLESTASIS
     Dosage: 600 MG, QD
     Route: 048
     Dates: start: 20110513, end: 20110530
  2. PANABATE [Concomitant]
     Indication: PRODUCT USED FOR UNKNOWN INDICATION
     Dosage: 400 MG, QD
     Route: 042
     Dates: start: 20110512, end: 20110521
  3. WYSTAL [Concomitant]
     Active Substance: CEFOPERAZONE SODIUM\SULBACTAM SODIUM
     Indication: PRODUCT USED FOR UNKNOWN INDICATION
     Dosage: 2 G, QD
     Route: 042
     Dates: start: 20110512, end: 20110521
  4. PARIET [Concomitant]
     Active Substance: RABEPRAZOLE SODIUM
     Indication: PRODUCT USED FOR UNKNOWN INDICATION
     Dosage: 10 MG, QD
     Route: 048
     Dates: start: 20110609, end: 20110730
  5. FAMOTIDINE. [Suspect]
     Active Substance: FAMOTIDINE
     Indication: PROPHYLAXIS AGAINST GASTROINTESTINAL ULCER
     Dosage: 20 MG, QD
     Route: 048

REACTIONS (7)
  - Drug-induced liver injury [Recovering/Resolving]
  - Blood bilirubin increased [Unknown]
  - Cholestasis [Unknown]
  - Rash pruritic [Recovering/Resolving]
  - Jaundice [Unknown]
  - Prothrombin time prolonged [Unknown]
  - Blood alkaline phosphatase increased [Unknown]

NARRATIVE: CASE EVENT DATE: 201105
